FAERS Safety Report 19559563 (Version 1)
Quarter: 2021Q3

REPORT INFORMATION
  Report Type: Spontaneous
  Country: US (occurrence: US)
  Receive Date: 20210716
  Receipt Date: 20210716
  Transmission Date: 20211014
  Serious: No
  Sender: FDA-Public Use
  Company Number: US-CELGENEUS-USA-20210702019

PATIENT
  Sex: Female

DRUGS (3)
  1. POMALYST [Suspect]
     Active Substance: POMALIDOMIDE
     Indication: PLASMA CELL MYELOMA
     Route: 048
     Dates: start: 201909
  2. POMALYST [Suspect]
     Active Substance: POMALIDOMIDE
     Route: 048
     Dates: start: 20191130, end: 20210701
  3. POMALYST [Suspect]
     Active Substance: POMALIDOMIDE
     Dosage: 4?2 MG
     Route: 048
     Dates: start: 202001

REACTIONS (2)
  - Constipation [Recovered/Resolved]
  - Weight increased [Recovered/Resolved]
